FAERS Safety Report 6911181-X (Version None)
Quarter: 2010Q3

REPORT INFORMATION
  Report Type: 
  Country: None (occurrence: None)
  Receive Date: 20100806
  Receipt Date: 20100727
  Transmission Date: 20110219
  Serious: Yes (Hospitalization)
  Sender: FDA-Public Use
  Company Number: DE-WYE-H16703910

PATIENT
  Age: 83 Year
  Sex: Male

DRUGS (6)
  1. AMIODARONE HCL [Suspect]
     Indication: ATRIAL FIBRILLATION
     Route: 048
     Dates: end: 20100501
  2. EZETIMIBE/SIMVASTATIN [Concomitant]
     Indication: HYPERLIPIDAEMIA
     Dosage: UNKNOWN
  3. AMLODIPINE BESYLATE [Concomitant]
     Indication: HYPERTENSION
     Dosage: UNKNOWN
  4. HYDROCHLOROTHIAZIDE [Concomitant]
     Indication: HYPERTENSION
     Dosage: UNKNOWN
  5. MULTAQ [Interacting]
     Indication: ATRIAL FIBRILLATION
     Route: 048
     Dates: start: 20100716, end: 20100722
  6. PHENPROCOUMON [Concomitant]
     Indication: ATRIAL FIBRILLATION
     Dosage: UNKNOWN

REACTIONS (2)
  - DRUG INTERACTION [None]
  - LONG QT SYNDROME [None]
